FAERS Safety Report 9166378 (Version 4)
Quarter: 2013Q3

REPORT INFORMATION
  Report Type: Report from Study
  Country: BR (occurrence: BR)
  Receive Date: 20130315
  Receipt Date: 20130814
  Transmission Date: 20140515
  Serious: Yes (Other)
  Sender: FDA-Public Use
  Company Number: PHHY2013BR024839

PATIENT
  Sex: Female
  Weight: 68 kg

DRUGS (10)
  1. GILENYA [Suspect]
     Indication: MULTIPLE SCLEROSIS
     Dosage: 1 DF, QD
     Route: 048
     Dates: start: 20121212
  2. GABAPENTIN [Concomitant]
     Indication: CONVULSION
     Dosage: 2 DF, DAILY
     Route: 048
  3. CARBAMAZEPINE [Concomitant]
     Indication: CONVULSION
     Dosage: 200 MG, TWO TABLETS DAILY
     Route: 048
     Dates: start: 2009, end: 2013
  4. CARBAMAZEPINE [Concomitant]
     Dosage: 300 MG, UNK
     Route: 048
  5. FLUOXETINE [Concomitant]
     Indication: DEPRESSION
     Dosage: 2 DF, DAILY
     Route: 048
  6. LYRICA [Concomitant]
     Indication: SPINAL PAIN
     Dosage: 2 DF, DAILY
     Route: 048
  7. LYRICA [Concomitant]
     Indication: PAIN IN EXTREMITY
  8. OXYBUTYNIN [Concomitant]
     Indication: URINARY RETENTION
     Dosage: 1 DF, DAILY
     Route: 048
  9. LUPICAL [Concomitant]
     Indication: PAIN
  10. LUPICAL [Concomitant]
     Indication: CONVULSION

REACTIONS (14)
  - Hand fracture [Not Recovered/Not Resolved]
  - Fall [Not Recovered/Not Resolved]
  - Swelling [Not Recovered/Not Resolved]
  - Feeling abnormal [Recovering/Resolving]
  - Limb discomfort [Unknown]
  - Fatigue [Recovering/Resolving]
  - Gait disturbance [Not Recovered/Not Resolved]
  - Multiple sclerosis relapse [Not Recovered/Not Resolved]
  - Paraesthesia [Recovering/Resolving]
  - Movement disorder [Recovered/Resolved]
  - Pain in extremity [Recovering/Resolving]
  - Spinal pain [Recovering/Resolving]
  - Burning sensation [Recovering/Resolving]
  - Back pain [Not Recovered/Not Resolved]
